FAERS Safety Report 11149612 (Version 1)
Quarter: 2015Q2

REPORT INFORMATION
  Report Type: Spontaneous
  Country: US (occurrence: US)
  Receive Date: 20150529
  Receipt Date: 20150529
  Transmission Date: 20150821
  Serious: Yes (Other)
  Sender: FDA-Public Use
  Company Number: US-TEVA-567125USA

PATIENT
  Sex: Female
  Weight: 65.83 kg

DRUGS (8)
  1. SYNRIBO [Suspect]
     Active Substance: OMACETAXINE MEPESUCCINATE
     Dosage: HOME ADMINISTRATION; 2.2MG/0.63ML
     Route: 058
     Dates: start: 20141017
  2. METOPROLOL [Concomitant]
     Active Substance: METOPROLOL
  3. FOLIC ACID. [Concomitant]
     Active Substance: FOLIC ACID
     Dosage: 2 MILLIGRAM DAILY;
  4. ASPIRIN. [Concomitant]
     Active Substance: ASPIRIN
     Dosage: 81 MILLIGRAM DAILY;
  5. HYDROXYUREA. [Concomitant]
     Active Substance: HYDROXYUREA
     Dosage: 1500 MILLIGRAM DAILY;
  6. LETROZOLE. [Concomitant]
     Active Substance: LETROZOLE
     Dosage: 25 MILLIGRAM DAILY;
  7. ALLOPURINOL. [Concomitant]
     Active Substance: ALLOPURINOL
     Dosage: 100 MILLIGRAM DAILY;
  8. ALEVE [Concomitant]
     Active Substance: NAPROXEN SODIUM
     Dosage: 4 DOSAGE FORMS DAILY;

REACTIONS (2)
  - Acute myeloid leukaemia [Unknown]
  - Breast cancer [Unknown]
